FAERS Safety Report 5787801-2 (Version None)
Quarter: 2008Q2

REPORT INFORMATION
  Report Type: 
  Country: None (occurrence: None)
  Receive Date: 20080625
  Receipt Date: 20080616
  Transmission Date: 20081010
  Serious: Yes (Other)
  Sender: FDA-Public Use
  Company Number: PHHY2008SE11006

PATIENT
  Sex: Male

DRUGS (3)
  1. DIOVAN COMP [Suspect]
     Indication: HYPERTENSION
     Dosage: 80 MG/12.5 MG
     Dates: start: 20080401
  2. ASPIRIN [Concomitant]
     Dosage: 75 MG, QD
  3. SIMVASTATIN [Concomitant]
     Dosage: 10 MG, QD

REACTIONS (5)
  - DIZZINESS [None]
  - EYE IRRITATION [None]
  - OCULAR DISCOMFORT [None]
  - PHOTOPSIA [None]
  - VITREOUS DETACHMENT [None]
